FAERS Safety Report 4393863-X (Version None)
Quarter: 2004Q3

REPORT INFORMATION
  Report Type: 
  Country: None (occurrence: None)
  Receive Date: 20040701
  Receipt Date: 20040428
  Transmission Date: 20050211
  Serious: No
  Sender: FDA-Public Use
  Company Number: 04US03219

PATIENT
  Sex: Male

DRUGS (1)
  1. SORIATANE [Suspect]
     Dosage: ORAL
     Route: 048

REACTIONS (1)
  - FRACTURE [None]
